FAERS Safety Report 13753962 (Version 1)
Quarter: 2017Q3

REPORT INFORMATION
  Report Type: Spontaneous
  Country: US (occurrence: US)
  Receive Date: 20170714
  Receipt Date: 20170714
  Transmission Date: 20171127
  Serious: No
  Sender: FDA-Public Use
  Company Number: None

PATIENT
  Sex: Female

DRUGS (2)
  1. BOTOX [Suspect]
     Active Substance: ONABOTULINUMTOXINA
     Dosage: DOSE - 200 U?FREQUENCY - Q90DAYS
     Route: 058
     Dates: start: 20151103
  2. KETOPROFEN. [Concomitant]
     Active Substance: KETOPROFEN

REACTIONS (2)
  - Maternal exposure timing unspecified [None]
  - Pregnancy [None]
